FAERS Safety Report 13483782 (Version 5)
Quarter: 2018Q3

REPORT INFORMATION
  Report Type: Report from Study
  Country: GB (occurrence: GB)
  Receive Date: 20170424
  Receipt Date: 20180827
  Transmission Date: 20181010
  Serious: Yes (Other)
  Sender: FDA-Public Use
  Company Number: GB-BRISTOL-MYERS SQUIBB COMPANY-BMS-2017-032062

PATIENT
  Age: 60 Year
  Sex: Female

DRUGS (3)
  1. ABATACEPT [Suspect]
     Active Substance: ABATACEPT
     Indication: RHEUMATOID ARTHRITIS
     Dosage: 125 MG, QWK
     Route: 058
     Dates: start: 20160908
  2. CLARITHROMYCIN. [Concomitant]
     Active Substance: CLARITHROMYCIN
     Indication: PRODUCT USED FOR UNKNOWN INDICATION
     Route: 065
  3. AMOXICILLIN/CLAVULANIC ACID [Concomitant]
     Active Substance: AMOXICILLIN\CLAVULANIC ACID
     Indication: PRODUCT USED FOR UNKNOWN INDICATION
     Route: 065

REACTIONS (9)
  - Fall [Unknown]
  - Colitis [Unknown]
  - Chest pain [Recovered/Resolved]
  - Limb injury [Recovering/Resolving]
  - Ligament sprain [Recovered/Resolved]
  - Lower respiratory tract infection [Unknown]
  - Crohn^s disease [Unknown]
  - Urinary tract infection [Recovered/Resolved]
  - Bursitis [Recovering/Resolving]

NARRATIVE: CASE EVENT DATE: 20161213
